FAERS Safety Report 7483923-9 (Version None)
Quarter: 2011Q2

REPORT INFORMATION
  Report Type: 
  Country: None (occurrence: None)
  Receive Date: 20110517
  Receipt Date: 20110509
  Transmission Date: 20111010
  Serious: Yes (Other)
  Sender: FDA-Public Use
  Company Number: US-US-EMD SERONO, INC.-7058846

PATIENT
  Sex: Female

DRUGS (1)
  1. REBIF [Suspect]
     Indication: MULTIPLE SCLEROSIS
     Route: 058
     Dates: start: 20091109

REACTIONS (5)
  - SCAR [None]
  - HERNIA REPAIR [None]
  - MUSCULOSKELETAL CHEST PAIN [None]
  - GALLBLADDER OPERATION [None]
  - VULVOVAGINAL PAIN [None]
